FAERS Safety Report 9214420 (Version 2)
Quarter: 2013Q2

REPORT INFORMATION
  Report Type: Report from Study
  Country: DE (occurrence: DE)
  Receive Date: 20130405
  Receipt Date: 20130419
  Transmission Date: 20140414
  Serious: Yes (Other)
  Sender: FDA-Public Use
  Company Number: DE-ROCHE-1207063

PATIENT
  Age: 68 Year
  Sex: Female
  Weight: 70.7 kg

DRUGS (7)
  1. PERTUZUMAB [Suspect]
     Indication: BREAST CANCER METASTATIC
     Route: 042
  2. TRASTUZUMAB [Suspect]
     Indication: BREAST CANCER METASTATIC
     Route: 042
  3. BENDAMUSTINE [Suspect]
     Indication: BREAST CANCER METASTATIC
     Route: 042
  4. CARBOPLATIN [Concomitant]
  5. GENTAMYCIN [Concomitant]
  6. TAMOXIFEN [Concomitant]
     Route: 065
     Dates: start: 201012, end: 201103
  7. BLEOMYCIN [Concomitant]
     Route: 065
     Dates: start: 201207

REACTIONS (1)
  - Malignant neoplasm progression [Not Recovered/Not Resolved]
